FAERS Safety Report 13811639 (Version 1)
Quarter: 2017Q3

REPORT INFORMATION
  Report Type: Spontaneous
  Country: US (occurrence: US)
  Receive Date: 20170728
  Receipt Date: 20170728
  Transmission Date: 20171127
  Serious: No
  Sender: FDA-Public Use
  Company Number: US-ROCHE-1006362

PATIENT
  Sex: Female

DRUGS (4)
  1. CALCIUM [Concomitant]
     Active Substance: CALCIUM
     Route: 065
  2. FIBER [Concomitant]
     Active Substance: PSYLLIUM HUSK
     Route: 065
  3. BONIVA [Suspect]
     Active Substance: IBANDRONATE SODIUM
     Indication: OSTEOPOROSIS
     Route: 040
     Dates: start: 201108
  4. CHONDROITIN [Concomitant]
     Active Substance: CHONDROITIN
     Route: 065

REACTIONS (3)
  - Dysphagia [Recovered/Resolved]
  - Bone pain [Recovering/Resolving]
  - Productive cough [Recovered/Resolved]
